FAERS Safety Report 5082246-5 (Version None)
Quarter: 2006Q3

REPORT INFORMATION
  Report Type: 
  Country: None (occurrence: None)
  Receive Date: 20060815
  Receipt Date: 20060815
  Transmission Date: 20061208
  Serious: Yes (Hospitalization)
  Sender: FDA-Public Use
  Company Number: None

PATIENT
  Sex: Female
  Weight: 33 kg

DRUGS (6)
  1. FLUOROURACIL [Suspect]
     Indication: COLORECTAL CANCER STAGE IV
     Dosage: 2223 MG EVERY 21 DAYS IV
     Route: 042
     Dates: start: 20060721, end: 20060721
  2. OXALIPLATIN [Suspect]
     Dosage: 100 MG EVERY 21 DAYS IV DRIP
     Route: 041
     Dates: start: 20060721, end: 20060721
  3. FLUOROURACIL [Concomitant]
  4. OXALIPLATIN [Concomitant]
  5. LEUCOVORIN CALCIUM [Concomitant]
  6. ERBITUX [Concomitant]

REACTIONS (10)
  - ABASIA [None]
  - ASTHENIA [None]
  - DIARRHOEA [None]
  - FALL [None]
  - FEBRILE NEUTROPENIA [None]
  - HYPONATRAEMIA [None]
  - HYPOTENSION [None]
  - PERFORMANCE STATUS DECREASED [None]
  - SKIN LACERATION [None]
  - SOMNOLENCE [None]
